FAERS Safety Report 23439632 (Version 1)
Quarter: 2024Q1

REPORT INFORMATION
  Report Type: Spontaneous
  Country: AU (occurrence: AU)
  Receive Date: 20240124
  Receipt Date: 20240124
  Transmission Date: 20240410
  Serious: Yes (Other)
  Sender: FDA-Public Use
  Company Number: AU-TEVA-VS-3148564

PATIENT

DRUGS (13)
  1. FENTANYL [Suspect]
     Active Substance: FENTANYL\FENTANYL CITRATE
     Route: 065
  2. ALLOPURINOL [Concomitant]
     Active Substance: ALLOPURINOL
  3. NITROGLYCERIN [Concomitant]
     Active Substance: NITROGLYCERIN
  4. SCOPOLAMINE HYDROBROMIDE [Concomitant]
     Active Substance: SCOPOLAMINE HYDROBROMIDE
  5. MORPHINE [Concomitant]
     Active Substance: MORPHINE
  6. NIFEDIPINE [Concomitant]
     Active Substance: NIFEDIPINE
  7. PRAZOSIN HYDROCHLORIDE [Concomitant]
     Active Substance: PRAZOSIN HYDROCHLORIDE
  8. ISORDIL [Concomitant]
     Active Substance: ISOSORBIDE DINITRATE
  9. METOPROLOL [Concomitant]
     Active Substance: METOPROLOL
  10. LIDOCAINE HYDROCHLORIDE [Suspect]
     Active Substance: LIDOCAINE HYDROCHLORIDE
     Route: 065
  11. NITROUS OXIDE [Suspect]
     Active Substance: NITROUS OXIDE
     Route: 065
  12. PANCURONIUM BROMIDE [Suspect]
     Active Substance: PANCURONIUM BROMIDE
     Route: 065
  13. DIAZEPAM [Concomitant]
     Active Substance: DIAZEPAM

REACTIONS (2)
  - Bradycardia [Unknown]
  - Cardiac arrest [Unknown]
